FAERS Safety Report 17209387 (Version 1)
Quarter: 2019Q4

REPORT INFORMATION
  Report Type: Report from Study
  Country: US (occurrence: US)
  Receive Date: 20191227
  Receipt Date: 20191227
  Transmission Date: 20200122
  Serious: Yes (Other)
  Sender: FDA-Public Use
  Company Number: US-PFIZER INC-2019375421

PATIENT
  Age: 68 Year
  Sex: Female

DRUGS (1)
  1. IBRANCE [Suspect]
     Active Substance: PALBOCICLIB
     Indication: BREAST CANCER FEMALE
     Dosage: 100 MG, CYCLIC (DAILY FOR 21 DAYS ON AND 7 DAYS OFF)
     Route: 048
     Dates: start: 20190822, end: 201912

REACTIONS (4)
  - Vomiting [Recovered/Resolved]
  - Neuropathy peripheral [Unknown]
  - Nausea [Recovered/Resolved]
  - Salivary hypersecretion [Unknown]

NARRATIVE: CASE EVENT DATE: 201909
